FAERS Safety Report 5307987-3 (Version None)
Quarter: 2007Q2

REPORT INFORMATION
  Report Type: 
  Country: None (occurrence: None)
  Receive Date: 20070426
  Receipt Date: 20070412
  Transmission Date: 20071010
  Serious: Yes (Hospitalization)
  Sender: FDA-Public Use
  Company Number: 2007AP02208

PATIENT
  Age: 28999 Day
  Sex: Female
  Weight: 60 kg

DRUGS (9)
  1. ARIMIDEX [Suspect]
     Indication: BREAST CANCER
     Route: 048
     Dates: start: 20051220, end: 20070301
  2. TAKEPRON [Suspect]
     Indication: GASTRIC ULCER
     Route: 048
     Dates: start: 20031021, end: 20070301
  3. SIGMART [Concomitant]
     Indication: ANGINA PECTORIS
     Route: 048
     Dates: start: 19940622
  4. KERLONG [Concomitant]
     Indication: HYPERTENSION
     Route: 048
     Dates: start: 19990302
  5. DIOVAN [Concomitant]
     Indication: HYPERTENSION
     Route: 048
     Dates: start: 20030311
  6. FLUITRAN [Concomitant]
     Indication: HYPERTENSION
     Route: 048
     Dates: start: 20030701
  7. LAC-B [Concomitant]
     Route: 048
     Dates: start: 20031021
  8. PROCYLIN [Concomitant]
     Indication: BREAST CANCER
     Route: 048
     Dates: start: 20031118
  9. PLETAL [Concomitant]
     Route: 048
     Dates: start: 20031118

REACTIONS (1)
  - INAPPROPRIATE ANTIDIURETIC HORMONE SECRETION [None]
